FAERS Safety Report 10451645 (Version 3)
Quarter: 2014Q4

REPORT INFORMATION
  Report Type: Spontaneous
  Country: JP (occurrence: JP)
  Receive Date: 20140914
  Receipt Date: 20141103
  Transmission Date: 20150528
  Serious: Yes (Death, Hospitalization, Other)
  Sender: FDA-Public Use
  Company Number: JP-BRISTOL-MYERS SQUIBB COMPANY-21393046

PATIENT
  Age: 81 Year
  Sex: Male
  Weight: 44 kg

DRUGS (9)
  1. ETHYL ICOSAPENTATE [Concomitant]
     Active Substance: ETHYL ICOSAPENTATE
  2. SODIUM FERROUS CITRATE [Concomitant]
  3. SODIUM PICOSULFATE [Concomitant]
     Active Substance: SODIUM PICOSULFATE
  4. FAMOTIDINE. [Concomitant]
     Active Substance: FAMOTIDINE
  5. MAGLAX [Concomitant]
     Active Substance: MAGNESIUM OXIDE
  6. METOCLOPRAMIDE. [Concomitant]
     Active Substance: METOCLOPRAMIDE
  7. CEFTRIAXONE. [Concomitant]
     Active Substance: CEFTRIAXONE
  8. POLYCARBOPHIL CALCIUM [Concomitant]
     Active Substance: CALCIUM POLYCARBOPHIL
  9. ELIQUIS [Suspect]
     Active Substance: APIXABAN
     Indication: THROMBOSIS PROPHYLAXIS
     Dosage: TABS
     Route: 048
     Dates: end: 20140903

REACTIONS (4)
  - Urinary tract infection [Unknown]
  - Cerebral haemorrhage [Fatal]
  - Abulia [Unknown]
  - Decreased appetite [Unknown]

NARRATIVE: CASE EVENT DATE: 20140828
